FAERS Safety Report 23053745 (Version 1)
Quarter: 2023Q4

REPORT INFORMATION
  Report Type: Spontaneous
  Country: CH (occurrence: CH)
  Receive Date: 20231011
  Receipt Date: 20231011
  Transmission Date: 20240110
  Serious: Yes (Other)
  Sender: FDA-Public Use
  Company Number: CH-UCBSA-2023048418

PATIENT
  Sex: Female

DRUGS (1)
  1. KEPPRA [Suspect]
     Active Substance: LEVETIRACETAM
     Indication: Seizure
     Dosage: KEPPRA 750
     Dates: start: 2020, end: 2022

REACTIONS (3)
  - Seizure [Unknown]
  - Adverse drug reaction [Unknown]
  - Impaired quality of life [Unknown]
